FAERS Safety Report 5619519-0 (Version None)
Quarter: 2008Q1

REPORT INFORMATION
  Report Type: 
  Country: None (occurrence: None)
  Receive Date: 20080205
  Receipt Date: 20080205
  Transmission Date: 20080703
  Serious: Yes (Hospitalization)
  Sender: FDA-Public Use
  Company Number: None

PATIENT
  Sex: Female
  Weight: 17.6903 kg

DRUGS (1)
  1. CHILDREN'S IBUPROFEN 100 WALGREEN'S [Suspect]
     Indication: PYREXIA
     Dosage: 1 1/2 TSP 6-8 HOURS PO
     Route: 048
     Dates: start: 20080202, end: 20080202

REACTIONS (5)
  - CONDITION AGGRAVATED [None]
  - EYE SWELLING [None]
  - PHARMACEUTICAL PRODUCT COMPLAINT [None]
  - PYREXIA [None]
  - URTICARIA [None]
